FAERS Safety Report 14032280 (Version 1)
Quarter: 2017Q4

REPORT INFORMATION
  Report Type: Spontaneous
  Country: US (occurrence: US)
  Receive Date: 20171003
  Receipt Date: 20171003
  Transmission Date: 20180321
  Serious: No
  Sender: FDA-Public Use
  Company Number: US-ASTRAZENECA-2017SE98707

PATIENT
  Sex: Male
  Weight: 103.6 kg

DRUGS (3)
  1. SEROQUEL [Suspect]
     Active Substance: QUETIAPINE FUMARATE
     Route: 048
  2. PROLACTIN [Concomitant]
     Active Substance: PROLACTIN
  3. ESTROGEN [Concomitant]
     Active Substance: ESTROGENS

REACTIONS (2)
  - Gynaecomastia [Unknown]
  - Obesity [Unknown]
